FAERS Safety Report 4966512-7 (Version None)
Quarter: 2006Q2

REPORT INFORMATION
  Report Type: 
  Country: None (occurrence: None)
  Receive Date: 20060403
  Receipt Date: 20060321
  Transmission Date: 20061013
  Serious: Yes (Hospitalization, Disabling, Other)
  Sender: FDA-Public Use
  Company Number: 2006039888

PATIENT
  Sex: Female
  Weight: 56.6996 kg

DRUGS (6)
  1. ZOLOFT [Suspect]
     Indication: DEPRESSION
     Dosage: 50 MG (50 MG, DAILY INTERVAL:  EVERY DAY)
  2. ASPIRIN [Concomitant]
  3. MULTIVITAMIN [Concomitant]
  4. CALCIUM (CALCIUM) [Concomitant]
  5. MIRAPEX [Concomitant]
  6. TRAZODONE HCL [Concomitant]

REACTIONS (11)
  - DIFFICULTY IN WALKING [None]
  - DIZZINESS [None]
  - DYSPHEMIA [None]
  - ELECTROENCEPHALOGRAM ABNORMAL [None]
  - FALL [None]
  - HEADACHE [None]
  - LOWER LIMB DEFORMITY [None]
  - MEMORY IMPAIRMENT [None]
  - NUCLEAR MAGNETIC RESONANCE IMAGING BRAIN ABNORMAL [None]
  - SOMATOFORM DISORDER [None]
  - TREMOR [None]
